FAERS Safety Report 6147625-3 (Version None)
Quarter: 2009Q2

REPORT INFORMATION
  Report Type: 
  Country: None (occurrence: None)
  Receive Date: 20090402
  Receipt Date: 20080924
  Transmission Date: 20091009
  Serious: Yes (Other)
  Sender: FDA-Public Use
  Company Number: US-WYE-H06150108

PATIENT
  Age: 39 Year
  Sex: Female
  Weight: 83.99 kg

DRUGS (1)
  1. ALAVERT [Suspect]
     Indication: HYPERSENSITIVITY
     Dosage: 1 TABLET, 2X PER 1 DAY, ORAL
     Route: 048
     Dates: start: 20080919, end: 20080922

REACTIONS (2)
  - CONDITION AGGRAVATED [None]
  - DYSMENORRHOEA [None]
